FAERS Safety Report 5124870-7 (Version None)
Quarter: 2006Q4

REPORT INFORMATION
  Report Type: 
  Country: None (occurrence: None)
  Receive Date: 20061011
  Receipt Date: 20061006
  Transmission Date: 20070319
  Serious: Yes (Hospitalization)
  Sender: FDA-Public Use
  Company Number: JP-ROCHE-466261

PATIENT
  Age: 73 Year
  Sex: Female

DRUGS (2)
  1. PANALDINE [Suspect]
     Indication: THROMBOSIS PROPHYLAXIS
     Dosage: SECOND INDICATION REPORTED AS CHRONIC ATRIAL FIBRILLATION
     Route: 048
     Dates: start: 20010615, end: 20060315
  2. WARFARIN SODIUM [Concomitant]

REACTIONS (2)
  - HYPOXIA [None]
  - PULMONARY ALVEOLAR HAEMORRHAGE [None]
